FAERS Safety Report 4879211-7 (Version None)
Quarter: 2005Q4

REPORT INFORMATION
  Report Type: 
  Country: None (occurrence: None)
  Receive Date: 20051209
  Receipt Date: 20050930
  Transmission Date: 20060501
  Serious: Yes (Death, Other)
  Sender: FDA-Public Use
  Company Number: USA-2005-0021367

PATIENT
  Age: 24 Year
  Sex: Female
  Weight: 74.8435 kg

DRUGS (3)
  1. OXYCONTIN [Suspect]
     Dosage: UNK MG, UNK, UNKNOWN
     Route: 065
  2. METHADONE HCL [Suspect]
     Route: 065
  3. COCAINE (COCAINE) [Suspect]
     Route: 065

REACTIONS (2)
  - DRUG ABUSER [None]
  - MULTIPLE DRUG OVERDOSE ACCIDENTAL [None]
